FAERS Safety Report 9540562 (Version 1)
Quarter: 2013Q3

REPORT INFORMATION
  Report Type: Spontaneous
  Country: US (occurrence: US)
  Receive Date: 20130920
  Receipt Date: 20130920
  Transmission Date: 20140515
  Serious: No
  Sender: FDA-Public Use
  Company Number: US-PFIZER INC-2013268782

PATIENT
  Age: 53 Year
  Sex: Female

DRUGS (7)
  1. SUTENT [Suspect]
     Indication: RENAL CANCER
     Dosage: 12.5 MG, UNK
     Dates: start: 20130129
  2. LISINOPRIL [Concomitant]
     Dosage: UNK
  3. NORTRIPTYLINE HYDROCHLORIDE [Concomitant]
     Dosage: UNK
  4. OMEPRAZOLE [Concomitant]
     Dosage: UNK
  5. PROCHLORPERAZINE MALEATE [Concomitant]
     Dosage: UNK
  6. TRIMETHOBENZAMIDE HYDROCHLORIDE [Concomitant]
     Dosage: UNK
  7. OXYCODONE HYDROCHLORIDE [Concomitant]
     Dosage: UNK

REACTIONS (2)
  - Palmar-plantar erythrodysaesthesia syndrome [Unknown]
  - Diarrhoea [Unknown]
